FAERS Safety Report 10770737 (Version 1)
Quarter: 2015Q1

REPORT INFORMATION
  Report Type: Spontaneous
  Country: US (occurrence: US)
  Receive Date: 20150206
  Receipt Date: 20150206
  Transmission Date: 20150721
  Serious: Yes (Other)
  Sender: FDA-Public Use
  Company Number: US-PURDUE-USA-2015-0120790

PATIENT
  Sex: Female

DRUGS (3)
  1. OXYCONTIN [Suspect]
     Active Substance: OXYCODONE HYDROCHLORIDE
     Dosage: 320 MG, DAILY
     Route: 048
  2. PERCOCET [Suspect]
     Active Substance: ACETAMINOPHEN\OXYCODONE HYDROCHLORIDE
     Indication: PAIN MANAGEMENT
     Dosage: FOUR TO SIX 10/325 MG TABLETS, DAILY
     Route: 065
  3. OXYCONTIN [Suspect]
     Active Substance: OXYCODONE HYDROCHLORIDE
     Indication: PAIN MANAGEMENT
     Dosage: 160 MG, DAILY
     Route: 048

REACTIONS (5)
  - Road traffic accident [Unknown]
  - Femur fracture [Unknown]
  - Tenosynovitis stenosans [Unknown]
  - Maternal exposure during pregnancy [Unknown]
  - Foot fracture [Unknown]

NARRATIVE: CASE EVENT DATE: 2009
